FAERS Safety Report 6852307-6 (Version None)
Quarter: 2010Q3

REPORT INFORMATION
  Report Type: 
  Country: None (occurrence: None)
  Receive Date: 20100717
  Receipt Date: 20071110
  Transmission Date: 20110219
  Serious: Yes (Other)
  Sender: FDA-Public Use
  Company Number: US-PFIZER INC-2007096689

PATIENT
  Sex: Male
  Weight: 148.63 kg

DRUGS (11)
  1. CHANTIX [Suspect]
     Indication: SMOKING CESSATION THERAPY
     Dates: start: 20071030, end: 20071109
  2. TOPROL-XL [Concomitant]
     Indication: HYPERTENSION
  3. STARLIX [Concomitant]
     Indication: DIABETES MELLITUS
  4. PLAVIX [Concomitant]
  5. COZAAR [Concomitant]
  6. THYROID TAB [Concomitant]
     Indication: THYROID DISORDER
  7. ISOSORBIDE MONONITRATE [Concomitant]
  8. LIPITOR [Concomitant]
     Indication: BLOOD CHOLESTEROL INCREASED
  9. KLOR-CON [Concomitant]
  10. ASPIRIN [Concomitant]
  11. OXYCONTIN [Concomitant]
     Indication: BACK INJURY

REACTIONS (5)
  - BURNING SENSATION [None]
  - ERYTHEMA [None]
  - PAIN [None]
  - PRURITUS [None]
  - RASH [None]
